FAERS Safety Report 7269561-1 (Version None)
Quarter: 2011Q1

REPORT INFORMATION
  Report Type: 
  Country: None (occurrence: None)
  Receive Date: 20110202
  Receipt Date: 20110124
  Transmission Date: 20110831
  Serious: Yes (Hospitalization)
  Sender: FDA-Public Use
  Company Number: DE-JNJFOC-20090703032

PATIENT
  Sex: Male

DRUGS (6)
  1. REOPRO [Suspect]
     Indication: ILL-DEFINED DISORDER
     Route: 042
  2. ACETYLSALICYLIC ACID SRT [Concomitant]
  3. RAMIPRIL [Concomitant]
  4. CLOPIDOGREL [Concomitant]
  5. ATORVASTATIN [Concomitant]
  6. METOPROLOL [Concomitant]

REACTIONS (1)
  - ANGINA UNSTABLE [None]
